FAERS Safety Report 9423690 (Version 1)
Quarter: 2013Q3

REPORT INFORMATION
  Report Type: Spontaneous
  Country: US (occurrence: US)
  Receive Date: 20130727
  Receipt Date: 20130727
  Transmission Date: 20140515
  Serious: No
  Sender: FDA-Public Use
  Company Number: US-009507513-1307USA010688

PATIENT
  Age: 23 Year
  Sex: Female
  Weight: 68.27 kg

DRUGS (1)
  1. NUVARING [Suspect]
     Indication: CONTRACEPTION
     Dosage: 3WEEK 1 WEEK REMOVAL
     Route: 067
     Dates: start: 20130630

REACTIONS (3)
  - Dyspnoea [Unknown]
  - Anxiety [Unknown]
  - Drug ineffective [Unknown]
